FAERS Safety Report 8060619-6 (Version None)
Quarter: 2012Q1

REPORT INFORMATION
  Report Type: 
  Country: None (occurrence: None)
  Receive Date: 20120120
  Receipt Date: 20120111
  Transmission Date: 20120608
  Serious: Yes (Hospitalization, Other)
  Sender: FDA-Public Use
  Company Number: US-CELGENEUS-163-21880-11120546

PATIENT
  Sex: Female

DRUGS (7)
  1. PAXIL [Concomitant]
     Indication: SEASONAL AFFECTIVE DISORDER
     Route: 048
  2. RED BLOOD CELLS [Concomitant]
     Route: 041
  3. REVLIMID [Suspect]
     Indication: MULTIPLE MYELOMA
     Dosage: 25 MILLIGRAM
     Route: 048
     Dates: start: 20110922
  4. DEXAMETHASONE TAB [Concomitant]
     Dosage: 40 MILLIGRAM
     Route: 048
     Dates: start: 20110909
  5. REVLIMID [Suspect]
     Dosage: 15 MILLIGRAM
     Route: 048
     Dates: start: 20111007, end: 20111024
  6. MULTIVITAMINS W/ CALCIUM + VITAMIN D [Concomitant]
     Route: 048
  7. ACYCLOVIR [Concomitant]
     Dosage: 400 MILLIGRAM
     Route: 048
     Dates: start: 20111110

REACTIONS (5)
  - DRUG INTOLERANCE [None]
  - ARTHRALGIA [None]
  - ORAL HERPES [None]
  - NEUTROPHIL COUNT DECREASED [None]
  - ANAEMIA [None]
